FAERS Safety Report 23082451 (Version 1)
Quarter: 2023Q4

REPORT INFORMATION
  Report Type: Report from Study
  Country: FR (occurrence: FR)
  Receive Date: 20231019
  Receipt Date: 20231019
  Transmission Date: 20240110
  Serious: Yes (Death, Hospitalization, Other)
  Sender: FDA-Public Use
  Company Number: FR-PBT-008376

PATIENT
  Age: 76 Year
  Sex: Female

DRUGS (2)
  1. TACROLIMUS [Suspect]
     Active Substance: TACROLIMUS
     Indication: Prophylaxis against transplant rejection
     Route: 065
  2. MYCOPHENOLATE MOFETIL [Suspect]
     Active Substance: MYCOPHENOLATE MOFETIL
     Indication: Prophylaxis against transplant rejection
     Route: 065

REACTIONS (9)
  - Lung disorder [Fatal]
  - Cardiovascular disorder [Fatal]
  - Gastrointestinal disorder [Fatal]
  - Blood disorder [Fatal]
  - Metabolic disorder [Fatal]
  - Renal disorder [Fatal]
  - Enterococcal infection [Unknown]
  - Haematological infection [Unknown]
  - Cardiac infection [Unknown]
